FAERS Safety Report 5080345-5 (Version None)
Quarter: 2006Q3

REPORT INFORMATION
  Report Type: 
  Country: None (occurrence: None)
  Receive Date: 20060814
  Receipt Date: 20060814
  Transmission Date: 20061208
  Serious: Yes (Life-Threatening)
  Sender: FDA-Public Use
  Company Number: None

PATIENT
  Age: 42 Year
  Sex: Female
  Weight: 77.1115 kg

DRUGS (1)
  1. EFFOXOR 375MG EFFOXOR [Suspect]
     Indication: ANXIETY
     Dosage: 375 MG ONCE DAILY
     Dates: start: 20040101, end: 20050203

REACTIONS (2)
  - ABNORMAL BEHAVIOUR [None]
  - ANGER [None]
